FAERS Safety Report 5104621-2 (Version None)
Quarter: 2006Q3

REPORT INFORMATION
  Report Type: 
  Country: None (occurrence: None)
  Receive Date: 20060914
  Receipt Date: 20060816
  Transmission Date: 20061208
  Serious: No
  Sender: FDA-Public Use
  Company Number: US-BRISTOL-MYERS SQUIBB COMPANY-13476742

PATIENT
  Age: 60 Year
  Sex: Female
  Weight: 77 kg

DRUGS (7)
  1. BUSPAR [Suspect]
     Indication: ANXIETY
     Dosage: DOSAGE: 1/3 TABLET OF 15 MG THREE TIMES PER DAY.
     Route: 048
     Dates: start: 20040806
  2. LISINOPRIL AND HYDROCHLOROTHIAZIDE [Concomitant]
  3. LISINOPRIL [Concomitant]
  4. NORVASC [Concomitant]
  5. WELLBUTRIN SR [Concomitant]
  6. METOPROLOL [Concomitant]
  7. LORAZEPAM [Concomitant]

REACTIONS (1)
  - HYPERTENSION [None]
